FAERS Safety Report 23874294 (Version 1)
Quarter: 2024Q2

REPORT INFORMATION
  Report Type: Spontaneous
  Country: US (occurrence: US)
  Receive Date: 20240520
  Receipt Date: 20240520
  Transmission Date: 20240716
  Serious: Yes (Other)
  Sender: FDA-Public Use
  Company Number: US-009507513-2405USA003886

PATIENT
  Age: 74 Year
  Sex: Male

DRUGS (4)
  1. KEYTRUDA [Suspect]
     Active Substance: PEMBROLIZUMAB
     Indication: Non-small cell lung cancer
     Dosage: UNK
     Dates: start: 202204, end: 202304
  2. PERINDOPRIL [Suspect]
     Active Substance: PERINDOPRIL
     Dosage: UNK
  3. CARBOPLATIN [Concomitant]
     Active Substance: CARBOPLATIN
     Indication: Non-small cell lung cancer
     Dosage: UNK
  4. PEMETREXED [Concomitant]
     Active Substance: PEMETREXED
     Indication: Non-small cell lung cancer
     Dosage: UNK

REACTIONS (4)
  - Malignant neoplasm progression [Unknown]
  - Acute kidney injury [Unknown]
  - Angiopathy [Unknown]
  - Hypotension [Unknown]
